FAERS Safety Report 16059497 (Version 5)
Quarter: 2019Q2

REPORT INFORMATION
  Report Type: Report from Study
  Country: US (occurrence: US)
  Receive Date: 20190311
  Receipt Date: 20190517
  Transmission Date: 20190711
  Serious: Yes (Hospitalization, Other)
  Sender: FDA-Public Use
  Company Number: US-ACTELION-A-US2018-184322

PATIENT
  Sex: Female
  Weight: 38.55 kg

DRUGS (7)
  1. VELETRI [Suspect]
     Active Substance: EPOPROSTENOL
     Dosage: UNK
     Route: 042
  2. VELETRI [Suspect]
     Active Substance: EPOPROSTENOL
     Dosage: 14 NG/KG, PER MIN
     Route: 042
  3. UPTRAVI [Concomitant]
     Active Substance: SELEXIPAG
     Route: 048
  4. VELETRI [Suspect]
     Active Substance: EPOPROSTENOL
     Indication: PULMONARY ARTERIAL HYPERTENSION
     Dosage: 10 NG/KG, PER MIN
     Route: 042
  5. OPSUMIT [Suspect]
     Active Substance: MACITENTAN
     Indication: PULMONARY ARTERIAL HYPERTENSION
     Dosage: 10 MG, QD
     Route: 048
  6. VELETRI [Suspect]
     Active Substance: EPOPROSTENOL
     Dosage: 8 NG/KG, PER MIN
     Route: 042
  7. VELETRI [Suspect]
     Active Substance: EPOPROSTENOL
     Dosage: 9 NG/KG, PER MIN
     Route: 042

REACTIONS (11)
  - Malaise [Unknown]
  - Dyspnoea [Unknown]
  - Abdominal discomfort [Unknown]
  - Dialysis [Unknown]
  - Abdominal pain upper [Unknown]
  - Arthralgia [Unknown]
  - Abdominal distension [Unknown]
  - Cyanosis [Unknown]
  - Pain in jaw [Unknown]
  - Headache [Unknown]
  - Intestinal obstruction [Unknown]
